FAERS Safety Report 5659021-3 (Version None)
Quarter: 2008Q1

REPORT INFORMATION
  Report Type: 
  Country: None (occurrence: None)
  Receive Date: 20080310
  Receipt Date: 20071004
  Transmission Date: 20080703
  Serious: No
  Sender: FDA-Public Use
  Company Number: US-BAYER-200711653BCC

PATIENT
  Sex: Female
  Weight: 86 kg

DRUGS (3)
  1. ALEVE [Suspect]
     Indication: PAIN
     Route: 048
  2. BLOOD PRESSURE MEDICATION [Concomitant]
  3. ALLEGRA [Concomitant]

REACTIONS (1)
  - FEELING ABNORMAL [None]
